FAERS Safety Report 16972141 (Version 2)
Quarter: 2019Q4

REPORT INFORMATION
  Report Type: Spontaneous
  Country: PT (occurrence: PT)
  Receive Date: 20191029
  Receipt Date: 20191114
  Transmission Date: 20200122
  Serious: Yes (Hospitalization)
  Sender: FDA-Public Use
  Company Number: PT-ELI_LILLY_AND_COMPANY-PT201910013020

PATIENT
  Age: 21 Year
  Sex: Female

DRUGS (3)
  1. HUMALOG [Suspect]
     Active Substance: INSULIN LISPRO
     Indication: DIABETES MELLITUS
     Dosage: 4.5 U, OTHER (AT BREAKFAST/ MORNING SNACK / LUNCH / AFTERNOON SNACK / DINNER)
     Route: 065
     Dates: start: 201904
  2. HUMALOG [Suspect]
     Active Substance: INSULIN LISPRO
     Dosage: UNK UNK, UNKNOWN
     Route: 065
  3. HUMALOG [Suspect]
     Active Substance: INSULIN LISPRO
     Dosage: 4.5 U, OTHER (AT BREAKFAST/ MORNING SNACK / LUNCH / AFTERNOON SNACK / DINNER)
     Route: 065
     Dates: start: 20191008

REACTIONS (1)
  - Diabetic ketoacidosis [Recovered/Resolved]
